FAERS Safety Report 9456729 (Version 1)
Quarter: 2013Q3

REPORT INFORMATION
  Report Type: Spontaneous
  Country: DE (occurrence: DE)
  Receive Date: 20130813
  Receipt Date: 20130813
  Transmission Date: 20140515
  Serious: Yes (Hospitalization)
  Sender: FDA-Public Use
  Company Number: DE-ACTAVIS-2013-14207

PATIENT
  Age: 54 Year
  Sex: Male

DRUGS (2)
  1. IBUPROFEN (UNKNOWN) [Suspect]
     Indication: PAIN
     Dosage: 2400 MG, UNKNOWN
     Route: 048
  2. TRUVADA [Suspect]
     Indication: HIV INFECTION
     Dosage: 500 MG, UNKNOWN
     Route: 048

REACTIONS (2)
  - Dialysis [Unknown]
  - Renal failure [Not Recovered/Not Resolved]
